FAERS Safety Report 7224139 (Version 2)
Quarter: 2013Q4

REPORT INFORMATION
  Report Type: Spontaneous
  Country: US (occurrence: US)
  Receive Date: 20091221
  Receipt Date: 20131206
  Transmission Date: 20140711
  Serious: Yes (Hospitalization, Other)
  Sender: FDA-Public Use
  Company Number: US-ELI_LILLY_AND_COMPANY-US200912001912

PATIENT
  Age: 66 Year
  Sex: Female

DRUGS (14)
  1. CYMBALTA [Suspect]
     Dosage: 1 D/F, UNK
     Dates: start: 2003
  2. CYMBALTA [Suspect]
     Dosage: 60 MG, DAILY (1/D)
  3. CYMBALTA [Suspect]
     Dosage: 30 MG, QOD
     Dates: start: 2006, end: 200706
  4. AMLODIPINE [Concomitant]
     Dosage: 5 MG, DAILY (1/D)
  5. ASPIRIN [Concomitant]
     Dosage: 325 MG, DAILY (1/D)
  6. CLOPIDOGREL [Concomitant]
     Dosage: 75 MG, DAILY (1/D)
  7. GABAPENTIN [Concomitant]
     Dosage: 300 MG, 3/D
  8. HYDROCODONE W/PARACETAMOL [Concomitant]
     Dosage: UNK MG, AS NEEDED
  9. OLMESARTAN [Concomitant]
     Dosage: 20 MG, DAILY (1/D)
  10. PANTOPRAZOLE [Concomitant]
     Dosage: 40 MG, DAILY (1/D)
  11. PHENYTOIN [Concomitant]
     Dosage: 100 MG, 2/D
  12. ROPINIROLE [Concomitant]
     Dosage: 2 MG, EACH EVENING
  13. SIMVASTATIN [Concomitant]
     Dosage: 20 MG, EACH EVENING
  14. HYDROCHLORZIDE [Concomitant]
     Dosage: 1 D/F, UNK
     Dates: end: 2006

REACTIONS (6)
  - Inappropriate antidiuretic hormone secretion [Recovered/Resolved with Sequelae]
  - Transient ischaemic attack [Recovered/Resolved]
  - Transient global amnesia [Unknown]
  - Complex partial seizures [Unknown]
  - Carotid artery stenosis [Unknown]
  - Hyponatraemia [Recovering/Resolving]
